FAERS Safety Report 24393150 (Version 1)
Quarter: 2024Q4

REPORT INFORMATION
  Report Type: Spontaneous
  Country: US (occurrence: None)
  Receive Date: 20241003
  Receipt Date: 20241003
  Transmission Date: 20250114
  Serious: Yes (Other)
  Sender: Public
  Company Number: None

PATIENT
  Age: 13 Year
  Sex: Male
  Weight: 21.6 kg

DRUGS (2)
  1. SOGROYA [Suspect]
     Active Substance: SOMAPACITAN\SOMAPACITAN-BECO
     Indication: Growth hormone deficiency
     Dosage: OTHER FREQUENCY : ONCE WEEKLY;?
     Route: 058
     Dates: start: 20240906, end: 20241001
  2. LEVOTHYROXINE [Concomitant]

REACTIONS (4)
  - Middle insomnia [None]
  - Headache [None]
  - Fear [None]
  - Insomnia [None]

NARRATIVE: CASE EVENT DATE: 20240914
